FAERS Safety Report 8394436-4 (Version None)
Quarter: 2012Q2

REPORT INFORMATION
  Report Type: 
  Country: None (occurrence: None)
  Receive Date: 20120530
  Receipt Date: 20120523
  Transmission Date: 20120825
  Serious: Yes (Hospitalization, Other)
  Sender: FDA-Public Use
  Company Number: PHHY2012FR044930

PATIENT
  Sex: Female

DRUGS (11)
  1. LASIX [Interacting]
     Dosage: 3 DF, DAILY
     Dates: start: 20120319
  2. PENTOXIFYLLINE [Concomitant]
     Indication: ATRIAL FIBRILLATION
     Dosage: 20 MG, UNK
  3. OXAZEPAM [Concomitant]
     Dates: end: 20120320
  4. ACTONEL [Concomitant]
     Indication: OSTEOPOROSIS
  5. ACETAMINOPHEN [Concomitant]
  6. PAROXETINE HYDROCHLORIDE [Interacting]
  7. STRESAM [Concomitant]
     Indication: DEPRESSION
     Dosage: 50 MG, DAILY
     Dates: end: 20120301
  8. NITROGLYCERIN [Concomitant]
     Indication: CORONARY ARTERY DISEASE
  9. ESIDRIX [Suspect]
     Dosage: 12.5 MG, DAILY
     Dates: end: 20110320
  10. DIGOXIN [Concomitant]
     Indication: ATRIAL FIBRILLATION
     Dosage: 1 DF, DAILY
  11. AMLODIPINE BESYLATE AND OLMESARTAN MEDOXOMIL [Concomitant]
     Indication: HYPERTENSION
     Dosage: 1 DF, UNK
     Dates: end: 20120320

REACTIONS (8)
  - FALL [None]
  - HYPONATRAEMIA [None]
  - BRONCHITIS [None]
  - HYPOXIA [None]
  - RESPIRATORY ALKALOSIS [None]
  - HYPERPROTEINAEMIA [None]
  - HYPOKALAEMIA [None]
  - RENAL FAILURE [None]
